FAERS Safety Report 24227003 (Version 1)
Quarter: 2024Q3

REPORT INFORMATION
  Report Type: Spontaneous
  Country: ES (occurrence: None)
  Receive Date: 20240820
  Receipt Date: 20240820
  Transmission Date: 20241017
  Serious: Yes (Hospitalization, Other)
  Sender: NORMON
  Company Number: ES-MLMSERVICE-20220812-3733410-1

PATIENT
  Age: 13 Year
  Sex: Male

DRUGS (9)
  1. DEXKETOPROFEN [Concomitant]
     Active Substance: DEXKETOPROFEN
     Indication: Back pain
  2. ACETAMINOPHEN [Concomitant]
     Active Substance: ACETAMINOPHEN
     Indication: Back pain
  3. VANCOMYCIN [Suspect]
     Active Substance: VANCOMYCIN
     Indication: Pyelonephritis
  4. MEROPENEM [Suspect]
     Active Substance: MEROPENEM
     Indication: Pyomyositis
  5. RIFAMPIN [Concomitant]
     Active Substance: RIFAMPIN
     Indication: Pyomyositis
  6. CLOXACILLIN [Concomitant]
     Active Substance: CLOXACILLIN
     Indication: Pyomyositis
  7. CEFOTAXIME [Suspect]
     Active Substance: CEFOTAXIME SODIUM
     Indication: Pyomyositis
     Dosage: DOSE ADJUSTED BY WEIGHT
  8. METAMIZOLE [Suspect]
     Active Substance: METAMIZOLE
     Indication: Back pain
  9. GADOBUTROL [Suspect]
     Active Substance: GADOBUTROL
     Indication: Diagnostic procedure

REACTIONS (3)
  - Renal function test abnormal [Recovered/Resolved]
  - Drug reaction with eosinophilia and systemic symptoms [Recovered/Resolved]
  - Liver function test abnormal [Recovered/Resolved]
